FAERS Safety Report 9162125 (Version 1)
Quarter: 2013Q1

REPORT INFORMATION
  Report Type: Spontaneous
  Country: ES (occurrence: None)
  Receive Date: 20130220
  Receipt Date: 20130220
  Transmission Date: 20140127
  Serious: Yes (Hospitalization)
  Sender: FDA-Public Use
  Company Number: DSM-2013-00171

PATIENT
  Age: 67 Year
  Sex: Female

DRUGS (2)
  1. OLMETEC [Suspect]
     Indication: ISCHAEMIC CARDIOMYOPATHY
     Route: 048
     Dates: start: 20090309
  2. INACID [Suspect]
     Indication: PAIN
     Route: 048
     Dates: start: 1995, end: 20090422

REACTIONS (7)
  - Diarrhoea [None]
  - Vomiting [None]
  - Renal failure acute [None]
  - Hyperkalaemia [None]
  - Blood pressure decreased [None]
  - Blood sodium decreased [None]
  - Drug interaction [None]
